FAERS Safety Report 5991190-8 (Version None)
Quarter: 2008Q4

REPORT INFORMATION
  Report Type: 
  Country: None (occurrence: None)
  Receive Date: 20081202
  Receipt Date: 20080114
  Transmission Date: 20090506
  Serious: Yes (Disabling)
  Sender: FDA-Public Use
  Company Number: WAES 0705USA01546

PATIENT
  Age: 62 Year
  Sex: Male
  Weight: 74.3899 kg

DRUGS (4)
  1. FOSAMAX [Suspect]
     Indication: OSTEOPOROSIS
     Dosage: 70 MG/WKY/PO
     Route: 048
     Dates: start: 20030101, end: 20060101
  2. LOMOTIL [Concomitant]
  3. TENORMIN [Concomitant]
  4. PREDNISONE [Concomitant]

REACTIONS (4)
  - DENTAL CARIES [None]
  - DRY MOUTH [None]
  - OSTEONECROSIS [None]
  - PERIODONTAL DISEASE [None]
